FAERS Safety Report 13301127 (Version 1)
Quarter: 2017Q1

REPORT INFORMATION
  Report Type: Spontaneous
  Country: GB (occurrence: GB)
  Receive Date: 20170307
  Receipt Date: 20170307
  Transmission Date: 20170428
  Serious: Yes (Life-Threatening)
  Sender: FDA-Public Use
  Company Number: GB-AUROBINDO-AUR-APL-2017-30254

PATIENT
  Sex: Female

DRUGS (1)
  1. SERTRALINE [Suspect]
     Active Substance: SERTRALINE HYDROCHLORIDE
     Indication: PANIC DISORDER
     Route: 065
     Dates: start: 2016

REACTIONS (4)
  - Intentional overdose [Recovered/Resolved]
  - Malaise [Unknown]
  - Abnormal behaviour [Unknown]
  - Suicide attempt [Recovered/Resolved]
